FAERS Safety Report 5803064-3 (Version None)
Quarter: 2008Q3

REPORT INFORMATION
  Report Type: 
  Country: None (occurrence: None)
  Receive Date: 20080708
  Receipt Date: 20080703
  Transmission Date: 20090109
  Serious: No
  Sender: FDA-Public Use
  Company Number: DE-EISAI MEDICAL RESEARCH-E2090-00464-SPO-DE

PATIENT
  Sex: Female
  Weight: 63 kg

DRUGS (4)
  1. ZONEGRAN [Suspect]
     Indication: EPILEPSY
     Dosage: 125 MG AM, 250 MG PM
     Route: 048
     Dates: start: 20080326, end: 20080301
  2. ZONEGRAN [Suspect]
     Dosage: 175 MG AM, 250 MG IN PM
     Route: 048
     Dates: start: 20080101
  3. ORFIRIL LONG (NATRIUM VALPROATE) [Concomitant]
     Indication: EPILEPSY
     Route: 048
     Dates: start: 20020101
  4. LAMOTRIGINE [Concomitant]
     Indication: EPILEPSY
     Route: 048
     Dates: start: 20020101

REACTIONS (1)
  - HYPOKALAEMIA [None]
